FAERS Safety Report 5802980-6 (Version None)
Quarter: 2008Q3

REPORT INFORMATION
  Report Type: 
  Country: None (occurrence: None)
  Receive Date: 20080708
  Receipt Date: 20080702
  Transmission Date: 20090109
  Serious: Yes (Other)
  Sender: FDA-Public Use
  Company Number: US-ASTRAZENECA-2008AC01691

PATIENT
  Age: 62 Year
  Sex: Male
  Weight: 106.6 kg

DRUGS (14)
  1. LIDOCAINE 2% [Suspect]
     Indication: LOCAL ANAESTHESIA
     Route: 048
  2. LIDOCAINE AEROSOL [Suspect]
     Indication: LOCAL ANAESTHESIA
     Route: 049
  3. LIDOCAINE [Suspect]
     Indication: LOCAL ANAESTHESIA
     Route: 049
  4. HURRICAINE [Suspect]
     Indication: BRONCHOSCOPY
     Route: 049
  5. CEPHALEXIN [Concomitant]
  6. AMITRIPTYLINE HCL [Concomitant]
  7. AMLODIPINE [Concomitant]
  8. ENOXAPARIN SODIUM [Concomitant]
  9. GABAPENTIN [Concomitant]
  10. PANTOPRAZOLE SODIUM [Concomitant]
  11. OXYCODONE HCL [Concomitant]
  12. PRAVASTATIN [Concomitant]
  13. MIDAZOLAM HCL [Concomitant]
     Indication: SEDATION
  14. FENTANYL [Concomitant]
     Indication: SEDATION

REACTIONS (1)
  - METHAEMOGLOBINAEMIA [None]
